FAERS Safety Report 5945973-0 (Version None)
Quarter: 2008Q4

REPORT INFORMATION
  Report Type: 
  Country: None (occurrence: None)
  Receive Date: 20081107
  Receipt Date: 20081107
  Transmission Date: 20090506
  Serious: Yes (Disabling)
  Sender: FDA-Public Use
  Company Number: None

PATIENT
  Age: 6 Year
  Sex: Male
  Weight: 28 kg

DRUGS (1)
  1. IMMUNE GLOBULIN NOS [Suspect]
     Dosage: ONCE IV
     Route: 042

REACTIONS (5)
  - COUGH [None]
  - FLUSHING [None]
  - INFUSION RELATED REACTION [None]
  - TACHYCARDIA [None]
  - TACHYPNOEA [None]
